FAERS Safety Report 21160960 (Version 1)
Quarter: 2022Q3

REPORT INFORMATION
  Report Type: Spontaneous
  Country: BR (occurrence: BR)
  Receive Date: 20220802
  Receipt Date: 20220802
  Transmission Date: 20221026
  Serious: Yes (Life-Threatening, Hospitalization)
  Sender: FDA-Public Use
  Company Number: BR-PFIZER INC-PV202200034293

PATIENT
  Age: 31 Year
  Sex: Female

DRUGS (16)
  1. DEPO-PROVERA [Suspect]
     Active Substance: MEDROXYPROGESTERONE ACETATE
     Indication: Contraception
     Dosage: 1 AMPOULE INTRAMUSCULAR EVERY 90 DAYS
     Route: 030
     Dates: start: 20161203
  2. FERROUS SULFATE [Concomitant]
     Active Substance: FERROUS SULFATE
     Dosage: UNK
  3. FOLIC ACID [Concomitant]
     Active Substance: FOLIC ACID
     Dosage: UNK
  4. AMLODIPINE [Concomitant]
     Active Substance: AMLODIPINE BESYLATE
     Indication: Hypertension
     Dosage: 10 MG, DAILY
  5. AMLODIPINE [Concomitant]
     Active Substance: AMLODIPINE BESYLATE
     Dosage: 1 TABLET EVERY 12 HOURS
     Dates: start: 20170712
  6. AMLODIPINE [Concomitant]
     Active Substance: AMLODIPINE BESYLATE
     Dosage: 1 TABLET EVERY 12 HOURS
     Dates: start: 20170725
  7. METHYLDOPA [Concomitant]
     Active Substance: METHYLDOPA
     Indication: Hypertension
     Dosage: 2 G, DAILY
  8. METHYLDOPA [Concomitant]
     Active Substance: METHYLDOPA
     Dosage: 1 TABLET EVERY 8 HOURS
     Dates: start: 20170605
  9. METHYLDOPA [Concomitant]
     Active Substance: METHYLDOPA
     Dosage: 2 TABLETS EVERY 6 HOURS
     Route: 048
     Dates: start: 20170623
  10. METHYLDOPA [Concomitant]
     Active Substance: METHYLDOPA
     Dosage: 2 TABLETS EVERY 6 HOURS
     Route: 048
     Dates: start: 20170712
  11. METHYLDOPA [Concomitant]
     Active Substance: METHYLDOPA
     Dosage: 2 TABLETS EVERY 6 HOURS
     Dates: start: 20220725
  12. PINDOLOL [Concomitant]
     Active Substance: PINDOLOL
     Dosage: UNK
  13. LEVOMEPROMAZINE [Concomitant]
     Active Substance: LEVOMEPROMAZINE
     Dosage: UNK
  14. CALCIUM CARBONATE [Concomitant]
     Active Substance: CALCIUM CARBONATE
     Dosage: UNK
  15. ASPIRIN [Concomitant]
     Active Substance: ASPIRIN
     Dosage: UNK
  16. AMOXICILLIN\CLAVULANIC ACID [Concomitant]
     Active Substance: AMOXICILLIN\CLAVULANIC ACID
     Dosage: 1 TABLET EVERY 8 HOURS
     Dates: start: 20170712

REACTIONS (16)
  - Pre-eclampsia [Unknown]
  - Hypertension [Unknown]
  - Blood pressure inadequately controlled [Unknown]
  - Maternal exposure during pregnancy [Unknown]
  - Nausea [Unknown]
  - Illness [Unknown]
  - Generalised anxiety disorder [Unknown]
  - Panic disorder [Unknown]
  - Proteinuria [Unknown]
  - Haemoglobin decreased [Unknown]
  - Haematocrit decreased [Unknown]
  - Blood urea decreased [Unknown]
  - Urine leukocyte esterase [Unknown]
  - Urine analysis abnormal [Unknown]
  - Urinary sediment present [Unknown]
  - Bacterial test positive [Unknown]

NARRATIVE: CASE EVENT DATE: 20170501
